FAERS Safety Report 18818757 (Version 1)
Quarter: 2021Q1

REPORT INFORMATION
  Report Type: Spontaneous
  Country: FR (occurrence: FR)
  Receive Date: 20210202
  Receipt Date: 20210202
  Transmission Date: 20210419
  Serious: Yes (Other)
  Sender: FDA-Public Use
  Company Number: FR-DEXPHARM-20210092

PATIENT
  Age: 32 Year
  Sex: Male
  Weight: 105 kg

DRUGS (15)
  1. ROCURONIUM B BRAUN [Suspect]
     Active Substance: ROCURONIUM BROMIDE
     Indication: INDUCTION OF ANAESTHESIA
     Route: 042
     Dates: start: 20200419, end: 20200419
  2. PERFALGAN [Suspect]
     Active Substance: ACETAMINOPHEN
     Indication: PAIN
     Route: 042
     Dates: start: 20200418, end: 20200418
  3. CLOTTAFACT [Suspect]
     Active Substance: FIBRINOGEN HUMAN
     Indication: HAEMORRHAGE
     Route: 042
     Dates: start: 20200419, end: 20200419
  4. ACUPAN [Suspect]
     Active Substance: NEFOPAM HYDROCHLORIDE
     Indication: PAIN
     Route: 042
     Dates: start: 20200418, end: 20200418
  5. MIDAZOLAM MYLAN 1 MG/ML, SOLUTION INJECTABLE (IM?IV) OU RECTALE [Suspect]
     Active Substance: MIDAZOLAM HYDROCHLORIDE
     Indication: INDUCTION OF ANAESTHESIA
     Route: 042
     Dates: start: 20200419, end: 20200419
  6. NORADRENALINE MYLAN [Suspect]
     Active Substance: NOREPINEPHRINE\NOREPINEPHRINE BITARTRATE
     Indication: SHOCK HAEMORRHAGIC
     Route: 042
     Dates: start: 20200419, end: 20200419
  7. ETOMIDATE LIPURO [Suspect]
     Active Substance: ETOMIDATE
     Indication: INDUCTION OF ANAESTHESIA
     Route: 042
     Dates: start: 20200419, end: 20200419
  8. SUFENTANIL MYLAN [Suspect]
     Active Substance: SUFENTANIL
     Indication: INDUCTION OF ANAESTHESIA
     Route: 042
     Dates: start: 20200419, end: 20200419
  9. AMOXICILLINE ACIDE CLAVULANIQUE SANDOZ [Suspect]
     Active Substance: AMOXICILLIN\CLAVULANATE POTASSIUM
     Indication: ANTIBIOTIC PROPHYLAXIS
     Dosage: IN TOTAL
     Route: 042
     Dates: start: 20200419, end: 20200419
  10. CHLORHEXIDINE (CHLORHYDRATE DE) [Suspect]
     Active Substance: CHLORHEXIDINE
     Indication: INFECTION PROPHYLAXIS
     Route: 003
     Dates: start: 20200419, end: 20200419
  11. GELOFUSINE 4 POUR CENT, SOLUTION INJECTABLE POUR PERFUSION EN FLACON [Suspect]
     Active Substance: SUCCINYLATED GELATIN
     Indication: HAEMORRHAGE
     Route: 042
     Dates: start: 20200419, end: 20200419
  12. IOMERON [Suspect]
     Active Substance: IOMEPROL
     Indication: COMPUTERISED TOMOGRAM
     Route: 042
     Dates: start: 20200418, end: 20200418
  13. ACIDE TRANEXAMIQUE AGUETTANT [Suspect]
     Active Substance: TRANEXAMIC ACID
     Indication: HAEMORRHAGE
     Dosage: IN TOTAL
     Route: 042
     Dates: start: 20200419, end: 20200419
  14. MORPHINE [Suspect]
     Active Substance: MORPHINE
     Indication: PAIN
     Route: 042
     Dates: start: 20200418, end: 20200418
  15. SUXAMETHONIUM BIOCODEX [Suspect]
     Active Substance: SUCCINYLCHOLINE CHLORIDE
     Indication: ANAESTHESIA
     Route: 042
     Dates: start: 20200419, end: 20200419

REACTIONS (1)
  - Angioedema [Recovered/Resolved]

NARRATIVE: CASE EVENT DATE: 20200419
